FAERS Safety Report 23596305 (Version 1)
Quarter: 2024Q1

REPORT INFORMATION
  Report Type: Spontaneous
  Country: PT (occurrence: PT)
  Receive Date: 20240305
  Receipt Date: 20240305
  Transmission Date: 20240410
  Serious: Yes (Other)
  Sender: FDA-Public Use
  Company Number: PT-B.Braun Medical Inc.-2154045

PATIENT
  Age: 51 Year
  Sex: Male
  Weight: 74 kg

DRUGS (1)
  1. METRONIDAZOLE [Suspect]
     Active Substance: METRONIDAZOLE
     Dates: start: 20240214

REACTIONS (3)
  - Lip oedema [Recovered/Resolved]
  - Off label use [Recovered/Resolved]
  - Face oedema [Recovered/Resolved]
